FAERS Safety Report 20441739 (Version 1)
Quarter: 2022Q1

REPORT INFORMATION
  Report Type: Spontaneous
  Country: GB (occurrence: GB)
  Receive Date: 20220208
  Receipt Date: 20220208
  Transmission Date: 20220423
  Serious: Yes (Other)
  Sender: FDA-Public Use
  Company Number: GB-MHRA-TPP39044849C8573998YC1643042316949

PATIENT
  Age: 73 Year
  Sex: Female
  Weight: 79 kg

DRUGS (5)
  1. AMLODIPINE [Suspect]
     Active Substance: AMLODIPINE BESYLATE
     Indication: Hypertension
     Dosage: 5 MILLIGRAM, ONCE A DAY(EACH MORNING)
     Route: 065
     Dates: start: 20210917
  2. Adcal [Concomitant]
     Indication: Product used for unknown indication
     Dosage: 2 DOSAGE FORM, ONCE A DAY(EACH MORNING. MEDICATION FOR C...)
     Route: 065
     Dates: start: 20210917
  3. ALENDRONIC ACID [Concomitant]
     Active Substance: ALENDRONIC ACID
     Indication: Product used for unknown indication
     Dosage: 1 DOSAGE FORM, EVERY WEEK(SAME DAY, EACH WEEK. DO ...)
     Route: 065
     Dates: start: 20210917
  4. ATORVASTATIN [Concomitant]
     Active Substance: ATORVASTATIN
     Indication: Blood cholesterol increased
     Dosage: 1 DOSAGE FORM, ONCE A DAY(EVERY NIGHT)
     Route: 065
     Dates: start: 20210917
  5. OMEPRAZOLE [Concomitant]
     Active Substance: OMEPRAZOLE
     Indication: Product used for unknown indication
     Dosage: 1 DOSAGE FORM, ONCE A DAY
     Route: 065
     Dates: start: 20210917

REACTIONS (2)
  - Peripheral swelling [Unknown]
  - Joint swelling [Recovering/Resolving]

NARRATIVE: CASE EVENT DATE: 20220124
